FAERS Safety Report 16657471 (Version 1)
Quarter: 2019Q3

REPORT INFORMATION
  Report Type: Spontaneous
  Country: US (occurrence: US)
  Receive Date: 20190801
  Receipt Date: 20190801
  Transmission Date: 20191004
  Serious: No
  Sender: FDA-Public Use
  Company Number: US-SA-2019SA205965

PATIENT
  Age: 44 Year
  Sex: Female

DRUGS (3)
  1. CAMPATH [Suspect]
     Active Substance: ALEMTUZUMAB
     Dosage: 10 MG
     Dates: start: 20190721, end: 20190721
  2. CAMPATH [Suspect]
     Active Substance: ALEMTUZUMAB
     Dosage: 30 MG
     Dates: start: 20190723, end: 20190723
  3. CAMPATH [Suspect]
     Active Substance: ALEMTUZUMAB
     Indication: ANGIOIMMUNOBLASTIC T-CELL LYMPHOMA
     Dosage: 3 MG
     Dates: start: 20190719, end: 20190719

REACTIONS (3)
  - Muscular weakness [Unknown]
  - Myopathy [Unknown]
  - Asthenia [Unknown]

NARRATIVE: CASE EVENT DATE: 20190723
